FAERS Safety Report 17647110 (Version 1)
Quarter: 2020Q2

REPORT INFORMATION
  Report Type: Spontaneous
  Country: FR (occurrence: FR)
  Receive Date: 20200408
  Receipt Date: 20200408
  Transmission Date: 20200713
  Serious: Yes (Other)
  Sender: FDA-Public Use
  Company Number: FR-PFIZER INC-2020140352

PATIENT
  Age: 38 Year
  Sex: Female

DRUGS (2)
  1. NOVATREX NOS [Suspect]
     Active Substance: AZITHROMYCIN OR METHOTREXATE SODIUM
     Indication: POLYARTHRITIS
     Dosage: 10 MG, WEEKLY
     Route: 048
     Dates: start: 2010
  2. HUMIRA [Suspect]
     Active Substance: ADALIMUMAB
     Indication: POLYARTHRITIS
     Dosage: 24 MG, MONTHLY
     Route: 058
     Dates: start: 2015

REACTIONS (3)
  - Hot flush [Not Recovered/Not Resolved]
  - Premature menopause [Not Recovered/Not Resolved]
  - Amenorrhoea [Not Recovered/Not Resolved]

NARRATIVE: CASE EVENT DATE: 2019
